FAERS Safety Report 8583833-X (Version None)
Quarter: 2012Q3

REPORT INFORMATION
  Report Type: 
  Country: None (occurrence: None)
  Receive Date: 20120810
  Receipt Date: 20120801
  Transmission Date: 20120928
  Serious: Yes (Other)
  Sender: FDA-Public Use
  Company Number: JP-009507513-1205USA05099

PATIENT

DRUGS (7)
  1. DOCETAXEL [Concomitant]
  2. DAI-KENCHU-TO [Concomitant]
     Dosage: UNK
     Dates: start: 20070217
  3. GASCON [Concomitant]
     Dosage: UNK
     Dates: start: 20120217
  4. CYCLOPHOSPHAMIDE [Concomitant]
  5. SENNA-MINT WAF [Concomitant]
     Dosage: UNK
     Dates: start: 20070217
  6. FOSAPREPITANT DIMEGLUMINE [Suspect]
     Dosage: 150 MG,QD
     Route: 042
     Dates: start: 20120501, end: 20120501
  7. JUZEN-TAIHO-TO [Concomitant]
     Dosage: UNK
     Dates: start: 20070217

REACTIONS (2)
  - INJECTION SITE PAIN [None]
  - PHARYNGEAL OEDEMA [None]
